FAERS Safety Report 5839065-9 (Version None)
Quarter: 2008Q3

REPORT INFORMATION
  Report Type: 
  Country: None (occurrence: None)
  Receive Date: 20080808
  Receipt Date: 20080729
  Transmission Date: 20090109
  Serious: Yes (Death, Hospitalization)
  Sender: FDA-Public Use
  Company Number: DE-ABBOTT-08P-062-0440378-00

PATIENT
  Sex: Female

DRUGS (16)
  1. HUMIRA [Suspect]
     Indication: RHEUMATOID ARTHRITIS
     Route: 058
     Dates: start: 20050201, end: 20050701
  2. REMICADE [Concomitant]
     Indication: RHEUMATOID ARTHRITIS
     Dates: start: 20011001, end: 20041001
  3. REMICADE [Concomitant]
  4. METHOTREXATE [Concomitant]
     Indication: RHEUMATOID ARTHRITIS
     Dates: start: 19960501, end: 20050701
  5. GOLD [Concomitant]
     Indication: RHEUMATOID ARTHRITIS
     Dates: start: 20010701, end: 20020501
  6. CITALOPRAM HYDROBROMIDE [Concomitant]
     Indication: DRUG USE FOR UNKNOWN INDICATION
  7. BISOPROLOL FUMARATE [Concomitant]
     Indication: DRUG USE FOR UNKNOWN INDICATION
  8. SANDOCAL D [Concomitant]
     Indication: DRUG USE FOR UNKNOWN INDICATION
  9. SANDOCAL D [Concomitant]
     Dosage: FORTE
  10. ALENDRONATE SODIUM [Concomitant]
     Indication: DRUG USE FOR UNKNOWN INDICATION
  11. PANTOPRAZOLE SODIUM [Concomitant]
     Indication: DRUG USE FOR UNKNOWN INDICATION
  12. PREDNISOLONE [Concomitant]
     Indication: DRUG USE FOR UNKNOWN INDICATION
  13. PREDNISOLONE [Concomitant]
     Dosage: DECORTIN
  14. CITALOPRAM HYDROBROMIDE [Concomitant]
     Indication: DRUG USE FOR UNKNOWN INDICATION
  15. NEBIVOLOL HCL [Concomitant]
     Indication: DRUG USE FOR UNKNOWN INDICATION
  16. TORSEMIDE [Concomitant]
     Indication: DRUG USE FOR UNKNOWN INDICATION

REACTIONS (6)
  - ARRHYTHMIA [None]
  - CARDIAC FAILURE [None]
  - DYSPNOEA [None]
  - HAEMOGLOBIN DECREASED [None]
  - PULMONARY FIBROSIS [None]
  - RESTLESSNESS [None]
